FAERS Safety Report 21761015 (Version 1)
Quarter: 2022Q4

REPORT INFORMATION
  Report Type: Spontaneous
  Country: US (occurrence: US)
  Receive Date: 20221221
  Receipt Date: 20221221
  Transmission Date: 20230113
  Serious: Yes (Death, Other)
  Sender: FDA-Public Use
  Company Number: US-SLATE RUN PHARMACEUTICALS-22US001452

PATIENT

DRUGS (8)
  1. CINACALCET HYDROCHLORIDE [Suspect]
     Active Substance: CINACALCET HYDROCHLORIDE
     Indication: Hypercalcaemia of malignancy
     Dosage: 30 MILLIGRAM, QD
     Dates: start: 20210614, end: 20210704
  2. CINACALCET HYDROCHLORIDE [Suspect]
     Active Substance: CINACALCET HYDROCHLORIDE
     Dosage: 30 MILLIGRAM, QD
     Dates: start: 20210311, end: 20210322
  3. CALCITONIN [Suspect]
     Active Substance: CALCITONIN
     Indication: Hypercalcaemia of malignancy
     Route: 045
  4. ZOLEDRONIC ACID [Concomitant]
     Active Substance: ZOLEDRONIC ACID
     Indication: Hypercalcaemia of malignancy
     Dosage: UNK
  5. PAMIDRONATE [Concomitant]
     Active Substance: PAMIDRONATE DISODIUM
     Indication: Hypercalcaemia of malignancy
     Route: 042
  6. ALENDRONATE [Concomitant]
     Active Substance: ALENDRONATE SODIUM
     Indication: Hypercalcaemia of malignancy
     Dosage: 70 MILLIGRAM, 1/WEEK
  7. CALCITONIN SALMON [Concomitant]
     Active Substance: CALCITONIN SALMON
     Indication: Hypercalcaemia of malignancy
     Dosage: 300 ARBITRARY UNIT, BID
     Route: 058
  8. UNSPECIFIED INGREDIENT [Concomitant]
     Active Substance: UNSPECIFIED INGREDIENT
     Indication: Hypercalcaemia of malignancy
     Route: 042

REACTIONS (8)
  - Cardiac arrest [Fatal]
  - Respiratory failure [Fatal]
  - Metastases to bone [Unknown]
  - Disease progression [None]
  - Failure to thrive [Unknown]
  - Infection [Unknown]
  - Spinal fracture [Unknown]
  - Drug ineffective [Unknown]
